FAERS Safety Report 6653065-0 (Version None)
Quarter: 2010Q1

REPORT INFORMATION
  Report Type: 
  Country: None (occurrence: None)
  Receive Date: 20100326
  Receipt Date: 20100317
  Transmission Date: 20100710
  Serious: Yes (Other)
  Sender: FDA-Public Use
  Company Number: PHHY2010JP16687

PATIENT

DRUGS (1)
  1. ZOMETA [Suspect]
     Dosage: 4 MG (PER ADMINISTRATION)
     Route: 042

REACTIONS (1)
  - OSTEONECROSIS [None]
